FAERS Safety Report 8242949 (Version 3)
Quarter: 2013Q1

REPORT INFORMATION
  Report Type: Spontaneous
  Country: US (occurrence: US)
  Receive Date: 20111114
  Receipt Date: 20130221
  Transmission Date: 20140127
  Serious: Yes (Hospitalization, Other)
  Sender: FDA-Public Use
  Company Number: US-ROCHE-1012026

PATIENT
  Sex: Male
  Weight: 180 kg

DRUGS (1)
  1. ACCUTANE [Suspect]
     Indication: ACNE
     Route: 065
     Dates: start: 1985, end: 1986

REACTIONS (8)
  - Crohn^s disease [Unknown]
  - Inflammatory bowel disease [Unknown]
  - Colitis ulcerative [Unknown]
  - Small intestinal obstruction [Unknown]
  - Depression [Unknown]
  - Injury [Unknown]
  - Anal fistula [Recovered/Resolved]
  - Suicidal ideation [Unknown]
